FAERS Safety Report 5626438-2 (Version None)
Quarter: 2008Q1

REPORT INFORMATION
  Report Type: 
  Country: None (occurrence: None)
  Receive Date: 20080214
  Receipt Date: 20080206
  Transmission Date: 20080703
  Serious: Yes (Death)
  Sender: FDA-Public Use
  Company Number: US-JNJFOC-20080202019

PATIENT
  Sex: Male
  Weight: 79.38 kg

DRUGS (5)
  1. DURAGESIC-100 [Suspect]
     Indication: DRUG USE FOR UNKNOWN INDICATION
     Route: 062
  2. WELLBUTRIN [Concomitant]
     Indication: DEPRESSION
     Route: 048
  3. HYDROCODONE BITARTRATE [Concomitant]
     Route: 048
  4. TRAZODONE HCL [Concomitant]
     Route: 048
  5. CLONAZEPAM [Concomitant]
     Route: 048

REACTIONS (3)
  - CARDIOMEGALY [None]
  - OVERDOSE [None]
  - SEDATION [None]
